FAERS Safety Report 22637929 (Version 1)
Quarter: 2023Q2

REPORT INFORMATION
  Report Type: Report from Study
  Country: US (occurrence: US)
  Receive Date: 20230626
  Receipt Date: 20230626
  Transmission Date: 20230721
  Serious: Yes (Death, Other)
  Sender: FDA-Public Use
  Company Number: US-ABBVIE-5301801

PATIENT
  Sex: Female

DRUGS (5)
  1. VENCLEXTA [Suspect]
     Active Substance: VENETOCLAX
     Indication: Myelodysplastic syndrome
     Dosage: FORM STRENGTH: 100 MG
     Route: 048
  2. VENCLEXTA [Suspect]
     Active Substance: VENETOCLAX
     Indication: Myelodysplastic syndrome
     Dosage: FORM STRENGTH: 100 MG/FREQUENCY TEXT: TAKE 1 TABLET BY MOUTH ON DAY 1
     Route: 048
  3. VENCLEXTA [Suspect]
     Active Substance: VENETOCLAX
     Indication: Myelodysplastic syndrome
     Dosage: FORM STRENGTH: 100 MG/THEN TAKE 2 TABLET(S) BY MOUTH ON DAY 2
     Route: 048
  4. VENCLEXTA [Suspect]
     Active Substance: VENETOCLAX
     Indication: Myelodysplastic syndrome
     Dosage: FORM STRENGTH: 100 MG/TAKE 4 TABLET(S) BY MOUTH IN THE MORNING FOR 9 DAYS TAKE WITH A MEAL AND WA...
     Route: 048
  5. VENCLEXTA [Suspect]
     Active Substance: VENETOCLAX
     Indication: Myelodysplastic syndrome
     Dosage: TAKE 4 TABLET(S) BY MOUTH EVERY DAY 14 DAYS ON, 7 DAYS OFF
     Route: 048

REACTIONS (3)
  - Death [Fatal]
  - Medical procedure [Unknown]
  - Off label use [Unknown]
